FAERS Safety Report 7768258-9 (Version None)
Quarter: 2011Q3

REPORT INFORMATION
  Report Type: 
  Country: None (occurrence: None)
  Receive Date: 20110922
  Receipt Date: 20100205
  Transmission Date: 20111222
  Serious: No
  Sender: FDA-Public Use
  Company Number: US-ASTRAZENECA-2009UW05022

PATIENT
  Age: 44 Year
  Sex: Male
  Weight: 108.9 kg

DRUGS (14)
  1. TRICOR [Concomitant]
     Dates: start: 20000620
  2. KLONOPIN [Concomitant]
     Dates: start: 20081101
  3. LISINOPRIL [Concomitant]
     Dates: start: 20081101
  4. ASPIRIN [Concomitant]
     Dates: start: 20081101
  5. THORAZINE [Concomitant]
  6. SEROQUEL [Suspect]
     Indication: SCHIZOPHRENIA
     Dosage: 200-300 MG
     Route: 048
     Dates: start: 20000317
  7. PERPHENAZINE [Concomitant]
     Dates: start: 20000313
  8. CHANTIX [Concomitant]
     Indication: SMOKING CESSATION THERAPY
  9. RISPERDAL [Concomitant]
  10. LEVOTHYROXINE SOD/SYNTHROID [Concomitant]
     Dates: start: 20000110
  11. PAXIL [Concomitant]
     Dates: start: 20001007
  12. HALDOL [Concomitant]
  13. TRILAFON [Concomitant]
  14. TRIHEXYPHENIDYL HCL [Concomitant]
     Dates: start: 20000530

REACTIONS (4)
  - TYPE 2 DIABETES MELLITUS [None]
  - DRUG INEFFECTIVE [None]
  - ILL-DEFINED DISORDER [None]
  - DIABETES MELLITUS [None]
